FAERS Safety Report 6329560-0 (Version None)
Quarter: 2009Q3

REPORT INFORMATION
  Report Type: 
  Country: None (occurrence: None)
  Receive Date: 20090824
  Receipt Date: 20090824
  Transmission Date: 20100115
  Serious: No
  Sender: FDA-Public Use
  Company Number: None

PATIENT
  Age: 41 Year
  Sex: Male
  Weight: 104.3273 kg

DRUGS (2)
  1. VENTOLIN [Suspect]
     Indication: ASTHMA
     Dates: start: 20090101, end: 20090823
  2. PROVENTIL-HFA [Suspect]

REACTIONS (1)
  - DRUG INEFFECTIVE [None]
